FAERS Safety Report 23536005 (Version 5)
Quarter: 2025Q1

REPORT INFORMATION
  Report Type: Spontaneous
  Country: US (occurrence: US)
  Receive Date: 20240219
  Receipt Date: 20250128
  Transmission Date: 20250409
  Serious: Yes (Hospitalization, Other)
  Sender: NOVARTIS
  Company Number: US-002147023-NVSC2024US033770

PATIENT
  Sex: Male

DRUGS (2)
  1. MEKINIST [Suspect]
     Active Substance: TRAMETINIB DIMETHYL SULFOXIDE
     Indication: Brain neoplasm malignant
     Dosage: 1.5 MG, QD
     Route: 048
     Dates: start: 202309
  2. TAFINLAR [Suspect]
     Active Substance: DABRAFENIB MESYLATE
     Indication: Brain neoplasm malignant
     Dosage: 100 MG, Q12H (TWICE DAILY)
     Route: 048
     Dates: start: 202309

REACTIONS (4)
  - Seizure [Unknown]
  - Visual impairment [Unknown]
  - Stomatitis [Unknown]
  - Alopecia [Unknown]
